APPROVED DRUG PRODUCT: METAXALONE
Active Ingredient: METAXALONE
Strength: 800MG
Dosage Form/Route: TABLET;ORAL
Application: A208774 | Product #001
Applicant: RISING PHARMA HOLDING INC
Approved: Sep 24, 2018 | RLD: No | RS: No | Type: DISCN